FAERS Safety Report 8743416 (Version 3)
Quarter: 2012Q4

REPORT INFORMATION
  Report Type: 
  Country: AR (occurrence: AR)
  Receive Date: 20120824
  Receipt Date: 20121121
  Transmission Date: 20130627
  Serious: Yes (Hospitalization)
  Sender: FDA-Public Use
  Company Number: AR-009507513-2011SP001987

PATIENT
  Age: 42 Year
  Sex: Male
  Weight: 63.7 kg

DRUGS (3)
  1. BOCEPREVIR [Suspect]
     Indication: CHRONIC HEPATITIS C
     Dosage: 2400 mg, UNK
     Route: 048
     Dates: start: 20100715, end: 20110113
  2. PEGINTRON [Suspect]
     Indication: CHRONIC HEPATITIS C
     Dosage: 150 units
     Route: 058
     Dates: start: 20100715, end: 20110106
  3. REBETOL [Suspect]
     Indication: CHRONIC HEPATITIS C
     Dosage: 1200 mg, UNK
     Route: 048
     Dates: start: 20100715, end: 20110112

REACTIONS (3)
  - Anaemia [Unknown]
  - Hypotension [None]
  - Urinary tract infection [None]
